FAERS Safety Report 10224397 (Version 1)
Quarter: 2014Q2

REPORT INFORMATION
  Report Type: Report from Study
  Country: US (occurrence: US)
  Receive Date: 20140609
  Receipt Date: 20140609
  Transmission Date: 20141212
  Serious: Yes (Other)
  Sender: FDA-Public Use
  Company Number: US-JNJFOC-20140601462

PATIENT
  Age: 66 Year
  Sex: Female
  Weight: 95.71 kg

DRUGS (2)
  1. REMICADE [Suspect]
     Indication: PSORIATIC ARTHROPATHY
     Route: 042
     Dates: start: 2012, end: 201401
  2. PREDNISONE [Suspect]
     Indication: ERYTHEMA NODOSUM
     Route: 065
     Dates: start: 201403

REACTIONS (10)
  - Coma [Recovered/Resolved]
  - Erythema nodosum [Unknown]
  - Urticaria [Unknown]
  - Oedema peripheral [Unknown]
  - Muscle tightness [Unknown]
  - Hypophagia [Unknown]
  - Hypertension [Recovering/Resolving]
  - Weight increased [Recovering/Resolving]
  - Abnormal loss of weight [Not Recovered/Not Resolved]
  - Adverse event [Not Recovered/Not Resolved]
